FAERS Safety Report 13576674 (Version 1)
Quarter: 2017Q2

REPORT INFORMATION
  Report Type: Spontaneous
  Country: US (occurrence: US)
  Receive Date: 20170524
  Receipt Date: 20170524
  Transmission Date: 20170830
  Serious: Yes (Life-Threatening, Hospitalization, Disabling)
  Sender: FDA-Public Use
  Company Number: None

PATIENT
  Age: 36 Year
  Sex: Male
  Weight: 81.9 kg

DRUGS (5)
  1. LEXAPRO [Concomitant]
     Active Substance: ESCITALOPRAM OXALATE
  2. IBPROPHEN [Concomitant]
  3. TYLENOL [Concomitant]
     Active Substance: ACETAMINOPHEN
  4. MEN^S MULTIVITAMIN [Concomitant]
  5. TRUVADA [Suspect]
     Active Substance: EMTRICITABINE\TENOFOVIR DISOPROXIL FUMARATE
     Indication: PRODUCT USED FOR UNKNOWN INDICATION
     Dosage: ?          QUANTITY:1 TABLET(S);?
     Route: 048
     Dates: start: 20161202, end: 20170523

REACTIONS (8)
  - Headache [None]
  - HIV infection [None]
  - Oropharyngeal pain [None]
  - Weight decreased [None]
  - Herpes virus infection [None]
  - Miliaria [None]
  - Syphilis [None]
  - Stress at work [None]

NARRATIVE: CASE EVENT DATE: 20170516
